FAERS Safety Report 7534505-1 (Version None)
Quarter: 2011Q2

REPORT INFORMATION
  Report Type: 
  Country: None (occurrence: None)
  Receive Date: 20110609
  Receipt Date: 20090507
  Transmission Date: 20111010
  Serious: Yes (Death, Other)
  Sender: FDA-Public Use
  Company Number: PHHY2009JP07684

PATIENT
  Sex: Male
  Weight: 6 kg

DRUGS (6)
  1. AMARYL [Concomitant]
     Indication: DIABETES MELLITUS
     Dosage: 1 DF
     Route: 048
     Dates: start: 20080716, end: 20081210
  2. FAMOTIDINE [Concomitant]
     Indication: DIABETES MELLITUS
     Dosage: 1 DF
     Route: 048
     Dates: start: 20080716, end: 20081210
  3. LEVOFLOXACIN [Concomitant]
     Indication: DIABETES MELLITUS
     Dosage: 3 DF
     Route: 048
     Dates: start: 20080716, end: 20081210
  4. SULFAMETHOXAZOLE [Concomitant]
     Indication: DIABETES MELLITUS
     Dosage: 4 DF
     Route: 048
     Dates: start: 20080716, end: 20081210
  5. EXJADE [Suspect]
     Indication: IRON OVERLOAD
     Dosage: 1250 MG DAILY
     Route: 048
     Dates: start: 20080716, end: 20081210
  6. VFEND [Concomitant]
     Indication: DIABETES MELLITUS
     Dosage: 2 DF
     Route: 048

REACTIONS (4)
  - PNEUMONIA [None]
  - NEUTROPHIL COUNT DECREASED [None]
  - EOSINOPHIL COUNT DECREASED [None]
  - BACTERIAL INFECTION [None]
